FAERS Safety Report 20691765 (Version 2)
Quarter: 2022Q3

REPORT INFORMATION
  Report Type: Spontaneous
  Country: US (occurrence: US)
  Receive Date: 20220408
  Receipt Date: 20220805
  Transmission Date: 20221027
  Serious: No
  Sender: FDA-Public Use
  Company Number: US-CHIESI-2022CHF01523

PATIENT
  Age: 4 Year
  Sex: Female

DRUGS (1)
  1. REVCOVI [Suspect]
     Active Substance: ELAPEGADEMASE-LVLR
     Indication: Combined immunodeficiency
     Dosage: 2.4 MILLIGRAM, 2X/WEEK
     Route: 065
     Dates: start: 20210407

REACTIONS (1)
  - Metapneumovirus infection [Unknown]

NARRATIVE: CASE EVENT DATE: 20220301
